FAERS Safety Report 25043528 (Version 1)
Quarter: 2025Q1

REPORT INFORMATION
  Report Type: Spontaneous
  Country: SE (occurrence: SE)
  Receive Date: 20250306
  Receipt Date: 20250306
  Transmission Date: 20250409
  Serious: Yes (Other)
  Sender: CURRAX PHARMACEUTICALS
  Company Number: None

PATIENT
  Age: 82 Year
  Sex: Male
  Weight: 129 kg

DRUGS (11)
  1. BUPROPION HYDROCHLORIDE\NALTREXONE HYDROCHLORIDE [Suspect]
     Active Substance: BUPROPION HYDROCHLORIDE\NALTREXONE HYDROCHLORIDE
     Indication: Overweight
     Route: 065
     Dates: start: 20241212
  2. BUPROPION HYDROCHLORIDE\NALTREXONE HYDROCHLORIDE [Suspect]
     Active Substance: BUPROPION HYDROCHLORIDE\NALTREXONE HYDROCHLORIDE
     Dosage: STRENGTH: 8/90 MG, 2 TABLETS 2 TIMES PER DAY
     Route: 065
     Dates: end: 20250219
  3. METOPROLOL [Concomitant]
     Active Substance: METOPROLOL
     Indication: Product used for unknown indication
  4. JARDIANCE [Concomitant]
     Active Substance: EMPAGLIFLOZIN
     Indication: Product used for unknown indication
  5. ATORVASTATIN [Concomitant]
     Active Substance: ATORVASTATIN
     Indication: Product used for unknown indication
  6. Candesarstad [Concomitant]
     Indication: Product used for unknown indication
  7. ELIQUIS [Concomitant]
     Active Substance: APIXABAN
     Indication: Product used for unknown indication
  8. Hydrochlorothiazide bluefish [Concomitant]
     Indication: Product used for unknown indication
  9. OMEPRAZOLE MAGNESIUM [Concomitant]
     Active Substance: OMEPRAZOLE MAGNESIUM
     Indication: Product used for unknown indication
  10. INSPRA [Concomitant]
     Active Substance: EPLERENONE
     Indication: Product used for unknown indication
  11. METFORMIN HYDROCHLORIDE [Concomitant]
     Active Substance: METFORMIN HYDROCHLORIDE
     Indication: Product used for unknown indication

REACTIONS (7)
  - Hallucination [Recovered/Resolved]
  - Pruritus [Recovering/Resolving]
  - Dry mouth [Recovered/Resolved]
  - Abnormal dreams [Recovered/Resolved]
  - Urticaria [Recovering/Resolving]
  - Balance disorder [Recovering/Resolving]
  - Nightmare [Recovered/Resolved]

NARRATIVE: CASE EVENT DATE: 20250115
